FAERS Safety Report 14299666 (Version 2)
Quarter: 2018Q1

REPORT INFORMATION
  Report Type: Report from Study
  Country: CA (occurrence: CA)
  Receive Date: 20171219
  Receipt Date: 20180102
  Transmission Date: 20180509
  Serious: Yes (Other)
  Sender: FDA-Public Use
  Company Number: CA-ROCHE-1899021

PATIENT
  Sex: Female

DRUGS (6)
  1. ACTEMRA [Suspect]
     Active Substance: TOCILIZUMAB
     Indication: RHEUMATOID ARTHRITIS
     Route: 042
     Dates: start: 20160824
  2. LOSEC [Concomitant]
     Active Substance: OMEPRAZOLE
  3. MELOXICAM. [Concomitant]
     Active Substance: MELOXICAM
  4. MOBICOX [Concomitant]
     Active Substance: MELOXICAM
  5. ACTONEL [Concomitant]
     Active Substance: RISEDRONATE SODIUM
     Route: 065
  6. L-THYROXINE [Concomitant]
     Active Substance: LEVOTHYROXINE

REACTIONS (12)
  - Joint swelling [Recovered/Resolved]
  - Mean cell haemoglobin concentration decreased [Unknown]
  - Nasopharyngitis [Recovering/Resolving]
  - Red blood cell count increased [Unknown]
  - Red cell distribution width increased [Unknown]
  - Pain [Not Recovered/Not Resolved]
  - Mean cell volume decreased [Unknown]
  - Cough [Unknown]
  - Back pain [Not Recovered/Not Resolved]
  - Blood cholesterol increased [Not Recovered/Not Resolved]
  - Asthma [Unknown]
  - Mean cell haemoglobin decreased [Unknown]

NARRATIVE: CASE EVENT DATE: 2017
